FAERS Safety Report 19269876 (Version 1)
Quarter: 2021Q2

REPORT INFORMATION
  Report Type: Spontaneous
  Country: US (occurrence: US)
  Receive Date: 20210518
  Receipt Date: 20210518
  Transmission Date: 20210717
  Serious: No
  Sender: FDA-Public Use
  Company Number: US-JNJFOC-20210522060

PATIENT
  Age: 74 Year
  Sex: Female

DRUGS (5)
  1. COVID?19 VACCINE NOS. [Concomitant]
     Active Substance: COVID-19 VACCINE NOS
     Dosage: DOSE# 2
     Route: 065
     Dates: start: 20210125
  2. ZYRTEC [Suspect]
     Active Substance: CETIRIZINE HYDROCHLORIDE
     Indication: VACCINATION COMPLICATION
     Route: 065
  3. LISINOPRIL. [Concomitant]
     Active Substance: LISINOPRIL
     Indication: VACCINATION COMPLICATION
     Dosage: USED FOR 5 DAY
     Route: 065
  4. PEPCID [Suspect]
     Active Substance: FAMOTIDINE
     Indication: VACCINATION COMPLICATION
     Route: 065
  5. COVID?19 VACCINE NOS. [Concomitant]
     Active Substance: COVID-19 VACCINE NOS
     Indication: IMMUNISATION
     Dosage: DOSE# 1
     Route: 065
     Dates: start: 20210104

REACTIONS (3)
  - Therapeutic response unexpected [Unknown]
  - Product use in unapproved indication [Unknown]
  - Off label use [Unknown]
